FAERS Safety Report 4951908-X (Version None)
Quarter: 2006Q1

REPORT INFORMATION
  Report Type: 
  Country: None (occurrence: None)
  Receive Date: 20060320
  Receipt Date: 20060306
  Transmission Date: 20060701
  Serious: Yes (Other)
  Sender: FDA-Public Use
  Company Number: 200610246BFR

PATIENT

DRUGS (1)
  1. CIPROFLAXACIN [Suspect]

REACTIONS (1)
  - PULMONARY HYPERTENSION [None]
